FAERS Safety Report 8856230 (Version 1)
Quarter: 2012Q4

REPORT INFORMATION
  Report Type: Spontaneous
  Country: BE (occurrence: None)
  Receive Date: 20121019
  Receipt Date: 20121019
  Transmission Date: 20130627
  Serious: Yes (Other)
  Sender: FDA-Public Use
  Company Number: BE-MACLEODS PHARMA-000036

PATIENT
  Age: 63 Year
  Sex: Female

DRUGS (3)
  1. PANTOPRAZOLE (PANTOPRAZOLE) [Suspect]
     Indication: DRUG USE FOR UNKNOWN INDICATION
  2. LANSOPRAZOLE (LANSOPRAZOLE) [Suspect]
     Indication: DRUG USE FOR UNKNOWN INDICATION
  3. OMEPRAZOLE (OMEPRAZOLE) [Suspect]
     Indication: GASTROESOPHAGEAL REFLUX

REACTIONS (2)
  - Prurigo [None]
  - Cross sensitivity reaction [None]
